FAERS Safety Report 7982722-9 (Version None)
Quarter: 2011Q4

REPORT INFORMATION
  Report Type: 
  Country: None (occurrence: None)
  Receive Date: 20111215
  Receipt Date: 20111212
  Transmission Date: 20120403
  Serious: Yes (Hospitalization, Disabling)
  Sender: FDA-Public Use
  Company Number: DE-ROCHE-799876

PATIENT
  Sex: Male
  Weight: 70 kg

DRUGS (4)
  1. MABTHERA [Suspect]
     Indication: NON-HODGKIN'S LYMPHOMA
     Dosage: LAST DOSE PRIOR TO SAE: 11 AUG 2011
     Route: 042
     Dates: start: 20110301, end: 20110811
  2. ASPIRIN [Concomitant]
  3. BENDAMUSTINE [Suspect]
     Indication: NON-HODGKIN'S LYMPHOMA
     Dosage: LAST DOSE PRIOR TO SAE: 12 AUG 2011
     Route: 042
     Dates: start: 20110301, end: 20110812
  4. CO-TRIMAZOLE [Concomitant]

REACTIONS (3)
  - PROGRESSIVE MULTIFOCAL LEUKOENCEPHALOPATHY [None]
  - HEMIPARESIS [None]
  - CEREBRAL INFARCTION [None]
